FAERS Safety Report 16798961 (Version 7)
Quarter: 2022Q1

REPORT INFORMATION
  Report Type: Spontaneous
  Country: US (occurrence: US)
  Receive Date: 20190912
  Receipt Date: 20220106
  Transmission Date: 20220424
  Serious: Yes (Hospitalization)
  Sender: FDA-Public Use
  Company Number: US-PFIZER INC-2019098393

PATIENT
  Age: 64 Year
  Sex: Male
  Weight: 106.1 kg

DRUGS (5)
  1. RAPAMUNE [Suspect]
     Active Substance: SIROLIMUS
     Indication: Liver transplant
     Dosage: 1 MG, 1X/DAY, (EVERY MORNING 90- DAY SUPPLY)
     Route: 048
     Dates: start: 20190227, end: 2019
  2. RAPAMUNE [Suspect]
     Active Substance: SIROLIMUS
     Dosage: 2 MG, DAILY
     Route: 048
     Dates: start: 2019, end: 2019
  3. RAPAMUNE [Suspect]
     Active Substance: SIROLIMUS
     Dosage: 2 DF, 1X/DAY
     Route: 048
     Dates: start: 2019, end: 2019
  4. RAPAMUNE [Suspect]
     Active Substance: SIROLIMUS
     Dosage: 1 MG, 2X/DAY(TAKE 1 TAB TWICE DAILY)
     Route: 048
  5. RAPAMUNE [Suspect]
     Active Substance: SIROLIMUS
     Dosage: 2 MG, 2X/DAY

REACTIONS (5)
  - Hepatic failure [Unknown]
  - Acute kidney injury [Unknown]
  - Product dose omission issue [Unknown]
  - Off label use [Unknown]
  - Malaise [Unknown]
